FAERS Safety Report 21050492 (Version 2)
Quarter: 2023Q1

REPORT INFORMATION
  Report Type: Spontaneous
  Country: US (occurrence: US)
  Receive Date: 20220707
  Receipt Date: 20230112
  Transmission Date: 20230417
  Serious: No
  Sender: FDA-Public Use
  Company Number: US-AMGEN-USASP2022115105

PATIENT
  Sex: Male

DRUGS (3)
  1. OTEZLA [Suspect]
     Active Substance: APREMILAST
     Indication: Tourette^s disorder
     Dosage: 30 MILLIGRAM, BID
     Route: 048
     Dates: start: 20200312
  2. OTEZLA [Suspect]
     Active Substance: APREMILAST
     Indication: Off label use
     Dosage: 30 MILLIGRAM, BID
     Route: 048
  3. TETRABENAZINE [Concomitant]
     Active Substance: TETRABENAZINE

REACTIONS (2)
  - Product dose omission issue [Unknown]
  - Off label use [Unknown]
